FAERS Safety Report 9169902 (Version 1)
Quarter: 2013Q1

REPORT INFORMATION
  Report Type: Spontaneous
  Country: US (occurrence: None)
  Receive Date: 20130314
  Receipt Date: 20130314
  Transmission Date: 20140127
  Serious: Yes (Other)
  Sender: FDA-Public Use
  Company Number: None

PATIENT
  Age: 40 Year
  Sex: Female
  Weight: 56.7 kg

DRUGS (2)
  1. ZYRTEC 10MG MCNEIL CONSUMER HEALTHCARE [Suspect]
     Indication: GASTROOESOPHAGEAL REFLUX DISEASE
     Dosage: 1 DOSE DAY PO
     Route: 048
     Dates: start: 20130301, end: 20130303
  2. ZYRTEC 10MG MCNEIL CONSUMER HEALTHCARE [Suspect]
     Indication: GASTROOESOPHAGEAL REFLUX DISEASE
     Dosage: 1 DOSE DAY PO
     Route: 048
     Dates: start: 20130301, end: 20130303

REACTIONS (3)
  - Lethargy [None]
  - Anxiety [None]
  - Sleep terror [None]
